FAERS Safety Report 8231696-4 (Version None)
Quarter: 2012Q1

REPORT INFORMATION
  Report Type: 
  Country: None (occurrence: None)
  Receive Date: 20120323
  Receipt Date: 20120316
  Transmission Date: 20120608
  Serious: Yes (Hospitalization)
  Sender: FDA-Public Use
  Company Number: IT-UCBSA-051961

PATIENT
  Age: 61 Year
  Sex: Female

DRUGS (4)
  1. KEPPRA [Suspect]
     Indication: EPILEPSY
     Route: 048
     Dates: start: 20110901, end: 20111204
  2. DEXAMETHASONE SODIUM PHOSPHATE [Concomitant]
     Dosage: 0.2% ORAL DROPS,SOLUTION 10 ML BOTTLE. 32 DROPS BID:TOTAL DAILY DOSE:64 DROPS
     Route: 048
  3. LANSOPRAZOLE [Concomitant]
     Dosage: 30  MG, DAILY DOSE: 1 DF
     Route: 048
  4. OXCARBAZEPINE [Suspect]
     Indication: EPILEPSY
     Dosage: 300 MG TABLETS( 50 DIVISIBLE TABLETS)
     Route: 048
     Dates: start: 20110901, end: 20111204

REACTIONS (1)
  - CHOLESTASIS [None]
